FAERS Safety Report 16854228 (Version 1)
Quarter: 2019Q3

REPORT INFORMATION
  Report Type: Spontaneous
  Country: US (occurrence: US)
  Receive Date: 20190926
  Receipt Date: 20190926
  Transmission Date: 20191005
  Serious: No
  Sender: FDA-Public Use
  Company Number: US-BION-007445

PATIENT
  Age: 56 Year
  Sex: Male
  Weight: 92.53 kg

DRUGS (1)
  1. IMODIUM A-D [Suspect]
     Active Substance: LOPERAMIDE HYDROCHLORIDE
     Indication: PROPHYLAXIS
     Dosage: DOSE: 1 SOFTGEL TWICE A DAY
     Route: 048

REACTIONS (2)
  - Incorrect dose administered [Not Recovered/Not Resolved]
  - Drug effective for unapproved indication [Not Recovered/Not Resolved]
